FAERS Safety Report 8302299-8 (Version None)
Quarter: 2012Q2

REPORT INFORMATION
  Report Type: 
  Country: None (occurrence: None)
  Receive Date: 20120418
  Receipt Date: 20120411
  Transmission Date: 20120825
  Serious: Yes (Hospitalization)
  Sender: FDA-Public Use
  Company Number: US-008185

PATIENT
  Sex: Female

DRUGS (1)
  1. TRANEXAMIC ACID [Suspect]
     Indication: MENORRHAGIA
     Dosage: TOOK UNKNOWN DOSE FOR TWO DAYS

REACTIONS (3)
  - FALL [None]
  - PULMONARY EMBOLISM [None]
  - LIGAMENT RUPTURE [None]
